FAERS Safety Report 17750733 (Version 2)
Quarter: 2020Q3

REPORT INFORMATION
  Report Type: Report from Study
  Country: BR (occurrence: BR)
  Receive Date: 20200506
  Receipt Date: 20200902
  Transmission Date: 20201102
  Serious: Yes (Disabling)
  Sender: FDA-Public Use
  Company Number: PHHY2019BR111408

PATIENT
  Age: 76 Year
  Sex: Female

DRUGS (1)
  1. COSENTYX [Suspect]
     Active Substance: SECUKINUMAB
     Indication: PSORIATIC ARTHROPATHY
     Dosage: UNK
     Route: 065
     Dates: start: 20190419, end: 201912

REACTIONS (11)
  - Arthralgia [Unknown]
  - Back pain [Unknown]
  - Pain [Not Recovered/Not Resolved]
  - Inflammation [Unknown]
  - Osteoarthritis [Not Recovered/Not Resolved]
  - Wound [Not Recovered/Not Resolved]
  - Mouth injury [Recovered/Resolved]
  - Gait inability [Not Recovered/Not Resolved]
  - Abdominal discomfort [Unknown]
  - Drug ineffective [Unknown]
  - Palate injury [Not Recovered/Not Resolved]

NARRATIVE: CASE EVENT DATE: 20190419
